FAERS Safety Report 7300677-7 (Version None)
Quarter: 2011Q1

REPORT INFORMATION
  Report Type: 
  Country: None (occurrence: None)
  Receive Date: 20110218
  Receipt Date: 20110127
  Transmission Date: 20110831
  Serious: Yes (Hospitalization)
  Sender: FDA-Public Use
  Company Number: US-CELGENEUS-163-21880-11020143

PATIENT
  Sex: Male

DRUGS (4)
  1. REVLIMID [Suspect]
     Route: 048
     Dates: start: 20101013
  2. PREDNISONE [Concomitant]
     Route: 065
  3. KLOR-CON [Concomitant]
     Route: 065
  4. VIGAMOX [Concomitant]
     Route: 065

REACTIONS (5)
  - HYPERKALAEMIA [None]
  - HYPOTENSION [None]
  - DIARRHOEA [None]
  - VOMITING [None]
  - NAUSEA [None]
